FAERS Safety Report 5005726-7 (Version None)
Quarter: 2006Q2

REPORT INFORMATION
  Report Type: 
  Country: None (occurrence: None)
  Receive Date: 20060518
  Receipt Date: 20060509
  Transmission Date: 20061013
  Serious: Yes (Other)
  Sender: FDA-Public Use
  Company Number: GB-JNJFOC-20060302743

PATIENT
  Sex: Male
  Weight: 40.5 kg

DRUGS (3)
  1. RISPERDAL [Suspect]
     Route: 048
  2. RISPERDAL [Suspect]
     Route: 048
  3. LACTULOSE [Concomitant]
     Indication: CONSTIPATION
     Route: 048

REACTIONS (1)
  - BLOOD BILIRUBIN INCREASED [None]
